FAERS Safety Report 5319277-3 (Version None)
Quarter: 2007Q2

REPORT INFORMATION
  Report Type: 
  Country: None (occurrence: None)
  Receive Date: 20070508
  Receipt Date: 20070426
  Transmission Date: 20071010
  Serious: Yes (Other)
  Sender: FDA-Public Use
  Company Number: US-PFIZER INC-2007014519

PATIENT
  Sex: Female

DRUGS (1)
  1. CHANTIX [Suspect]

REACTIONS (7)
  - LOSS OF CONSCIOUSNESS [None]
  - MENTAL DISORDER [None]
  - MIDDLE EAR EFFUSION [None]
  - NERVOUSNESS [None]
  - NIGHT SWEATS [None]
  - SPEECH DISORDER [None]
  - SURGERY [None]
